FAERS Safety Report 17638515 (Version 1)
Quarter: 2020Q2

REPORT INFORMATION
  Report Type: Spontaneous
  Country: US (occurrence: US)
  Receive Date: 20200407
  Receipt Date: 20200407
  Transmission Date: 20200713
  Serious: No
  Sender: FDA-Public Use
  Company Number: None

PATIENT
  Age: 31 Year
  Sex: Female
  Weight: 69.75 kg

DRUGS (13)
  1. PRAZOSIN. [Suspect]
     Active Substance: PRAZOSIN
     Indication: POSTPARTUM STRESS DISORDER
     Dosage: ?          QUANTITY:1 CAPSULE(S);?
     Route: 048
     Dates: start: 20200219, end: 20200309
  2. PRAZOSIN. [Suspect]
     Active Substance: PRAZOSIN
     Indication: NIGHTMARE
     Dosage: ?          QUANTITY:1 CAPSULE(S);?
     Route: 048
     Dates: start: 20200219, end: 20200309
  3. FLUDROCORTISONE [Concomitant]
     Active Substance: FLUDROCORTISONE
  4. JUNEL [Concomitant]
     Active Substance: ETHINYL ESTRADIOL\NORETHINDRONE ACETATE
  5. LAMOTRIGINE. [Concomitant]
     Active Substance: LAMOTRIGINE
  6. IBUPROFEN. [Concomitant]
     Active Substance: IBUPROFEN
  7. DILTIAZEM. [Concomitant]
     Active Substance: DILTIAZEM
  8. METOPROLOL TARTRATE. [Concomitant]
     Active Substance: METOPROLOL TARTRATE
  9. HYDROXYZINE HCL [Concomitant]
     Active Substance: HYDROXYZINE HYDROCHLORIDE
  10. MEDICAL MARIJUANA [Concomitant]
     Active Substance: CANNABIS SATIVA SUBSP. INDICA TOP
  11. TRAZODONE [Concomitant]
     Active Substance: TRAZODONE HYDROCHLORIDE
  12. OMEPRAZOLE. [Concomitant]
     Active Substance: OMEPRAZOLE
  13. RANITIDINE. [Concomitant]
     Active Substance: RANITIDINE

REACTIONS (2)
  - Affective disorder [None]
  - Depression [None]
